FAERS Safety Report 16400648 (Version 1)
Quarter: 2019Q2

REPORT INFORMATION
  Report Type: Spontaneous
  Country: US (occurrence: US)
  Receive Date: 20190606
  Receipt Date: 20190606
  Transmission Date: 20190711
  Serious: Yes (Other)
  Sender: FDA-Public Use
  Company Number: US-PFIZER INC-2019239847

PATIENT
  Age: 53 Year
  Sex: Female
  Weight: 86.17 kg

DRUGS (1)
  1. XELJANZ [Suspect]
     Active Substance: TOFACITINIB CITRATE
     Indication: RHEUMATOID ARTHRITIS
     Dosage: 5 MG, 2X/DAY
     Route: 048
     Dates: start: 201806

REACTIONS (4)
  - Ulcer [Unknown]
  - Gastrointestinal ulcer [Unknown]
  - Haematemesis [Unknown]
  - Perforation [Unknown]

NARRATIVE: CASE EVENT DATE: 201901
